FAERS Safety Report 25632057 (Version 1)
Quarter: 2025Q3

REPORT INFORMATION
  Report Type: Spontaneous
  Country: GB (occurrence: GB)
  Receive Date: 20250801
  Receipt Date: 20250801
  Transmission Date: 20251020
  Serious: Yes (Other)
  Sender: AMGEN
  Company Number: GB-AMGEN-GBRSP2025149931

PATIENT

DRUGS (9)
  1. ADALIMUMAB [Suspect]
     Active Substance: ADALIMUMAB
     Indication: Crohn^s disease
     Dosage: 40 MILLIGRAM, Q2WK
     Route: 058
  2. ADALIMUMAB [Suspect]
     Active Substance: ADALIMUMAB
     Route: 058
  3. AMOXICILLIN [Concomitant]
     Active Substance: AMOXICILLIN
     Dosage: UNK UNK, QD
  4. DULOXETINE [Concomitant]
     Active Substance: DULOXETINE
  5. MORPHINE SULFATE [Concomitant]
     Active Substance: MORPHINE SULFATE
  6. FENTANYL [Concomitant]
     Active Substance: FENTANYL
  7. MORPHINE [Concomitant]
     Active Substance: MORPHINE
  8. DOMPERIDONE [Concomitant]
     Active Substance: DOMPERIDONE
  9. VITAMIN B12 [Concomitant]
     Active Substance: CYANOCOBALAMIN

REACTIONS (9)
  - Immunodeficiency [Unknown]
  - Pneumonia [Unknown]
  - Crohn^s disease [Unknown]
  - Pericarditis [Unknown]
  - Bronchitis [Unknown]
  - Sinusitis [Unknown]
  - Ill-defined disorder [Unknown]
  - Device difficult to use [Unknown]
  - Drug dose omission by device [Unknown]
